FAERS Safety Report 7130169-X (Version None)
Quarter: 2010Q4

REPORT INFORMATION
  Report Type: 
  Country: None (occurrence: None)
  Receive Date: 20101201
  Receipt Date: 20101123
  Transmission Date: 20110411
  Serious: Yes (Other)
  Sender: FDA-Public Use
  Company Number: KP-PAR PHARMACEUTICAL, INC-2010SCPR002307

PATIENT
  Age: 52 Year
  Sex: Male

DRUGS (2)
  1. METRONIDAZOLE [Suspect]
     Indication: BRAIN ABSCESS
     Dosage: 2 G, DAILY DOSAGE
     Route: 065
  2. CEFTRIAXONE [Concomitant]
     Indication: BRAIN ABSCESS
     Dosage: 8 G, DAILY DOSAGE
     Route: 042

REACTIONS (1)
  - TOXIC ENCEPHALOPATHY [None]
